FAERS Safety Report 18300071 (Version 2)
Quarter: 2021Q2

REPORT INFORMATION
  Report Type: Report from Study
  Country: AU (occurrence: AU)
  Receive Date: 20200922
  Receipt Date: 20210606
  Transmission Date: 20210717
  Serious: Yes (Hospitalization, Other)
  Sender: FDA-Public Use
  Company Number: AU-BRISTOL-MYERS SQUIBB COMPANY-BMS-2020-067129

PATIENT
  Age: 71 Year
  Sex: Female
  Weight: 120 kg

DRUGS (11)
  1. DENOSUMAB [Concomitant]
     Active Substance: DENOSUMAB
     Indication: CHRONIC DISEASE
     Dosage: 60 MILLIGRAM, 6 MONTHLY
     Route: 048
     Dates: start: 2019
  2. IRBESARTAN. [Concomitant]
     Active Substance: IRBESARTAN
     Indication: GLIOBLASTOMA
     Dosage: 300 MILLIGRAM, QD
     Route: 048
     Dates: start: 2019
  3. PARACETAMOL [Concomitant]
     Active Substance: ACETAMINOPHEN
     Indication: GLIOBLASTOMA MULTIFORME
     Dosage: 1 GRAM, PRN
     Route: 048
     Dates: start: 2020
  4. MACROGOL [Concomitant]
     Active Substance: POLYETHYLENE GLYCOLS
     Indication: CONSTIPATION
     Dosage: 13.8 GRAM, PRN
     Route: 048
     Dates: start: 2020
  5. METOCLOPRAMIDE. [Concomitant]
     Active Substance: METOCLOPRAMIDE
     Indication: NAUSEA
     Dosage: 10MG, PRN
     Route: 048
     Dates: start: 20200319
  6. RABEPRAZOLE [Concomitant]
     Active Substance: RABEPRAZOLE
     Indication: GASTROOESOPHAGEAL REFLUX DISEASE
     Dosage: 20 MILLIGRAM, QD
     Route: 048
     Dates: start: 2019
  7. ONDANSETRON [Concomitant]
     Active Substance: ONDANSETRON
     Indication: NAUSEA
     Dosage: 8 MILLIGRAM, PRN
     Route: 048
     Dates: start: 20200312
  8. NIVOLUMAB [Suspect]
     Active Substance: NIVOLUMAB
     Indication: GLIOBLASTOMA MULTIFORME
     Dosage: 480 MILLIGRAM
     Route: 042
     Dates: start: 20200507, end: 20200903
  9. FRUSEMIDE [FUROSEMIDE] [Concomitant]
     Active Substance: FUROSEMIDE
     Indication: PRODUCT USED FOR UNKNOWN INDICATION
     Dosage: 40 MILLIGRAM, QD
     Route: 048
     Dates: start: 2020
  10. DESVENLAFAXINE. [Concomitant]
     Active Substance: DESVENLAFAXINE
     Indication: DEPRESSION
     Dosage: 50 MILLIGRAM, QD
     Route: 048
     Dates: start: 2019
  11. METOPROLOL. [Concomitant]
     Active Substance: METOPROLOL
     Indication: GLIOBLASTOMA
     Dosage: 50 MILLIGRAM, BID
     Route: 048
     Dates: start: 2020

REACTIONS (2)
  - Angina pectoris [Recovered/Resolved with Sequelae]
  - Sepsis [Recovered/Resolved with Sequelae]

NARRATIVE: CASE EVENT DATE: 20200804
